FAERS Safety Report 14451617 (Version 2)
Quarter: 2020Q4

REPORT INFORMATION
  Report Type: Spontaneous
  Country: US (occurrence: US)
  Receive Date: 20180129
  Receipt Date: 20201019
  Transmission Date: 20210113
  Serious: No
  Sender: FDA-Public Use
  Company Number: US-PFIZER INC-2018001743

PATIENT
  Age: 68 Year
  Sex: Female

DRUGS (2)
  1. LYRICA [Suspect]
     Active Substance: PREGABALIN
     Indication: PAIN
     Dosage: UNK, DAILY (ONE DAILY WITH ONE ADDITIONAL TAB FOLLOWING DIALYSIS)
  2. LYRICA [Suspect]
     Active Substance: PREGABALIN
     Indication: RESTLESS LEGS SYNDROME
     Dosage: 75 MG, DAILY (TAKE ONE BY MOUTH DAILY WITH AN EXTRA 75 MG TAB AFTER DIALYSIS ON DIALYSIS DAYS ONLY)
     Route: 048

REACTIONS (1)
  - Drug hypersensitivity [Unknown]
